FAERS Safety Report 8853823 (Version 2)
Quarter: 2012Q4

REPORT INFORMATION
  Report Type: 
  Country: NL (occurrence: NL)
  Receive Date: 20121022
  Receipt Date: 20121210
  Transmission Date: 20130627
  Serious: Yes (Death, Hospitalization)
  Sender: FDA-Public Use
  Company Number: PHHY2012NL093733

PATIENT
  Age: 48 Year
  Sex: Female

DRUGS (3)
  1. ZOMETA [Suspect]
     Indication: BREAST CANCER METASTATIC
     Dosage: 4 mg/100 ml per 28 days
  2. ZOMETA [Suspect]
     Dosage: 4 mg/100 ml per 28 days
     Dates: start: 20100130
  3. ZOMETA [Suspect]
     Dosage: 4 mg/100 ml per 28 days
     Dates: start: 20120921

REACTIONS (3)
  - Pneumonia [Fatal]
  - Dehydration [Not Recovered/Not Resolved]
  - Breast cancer metastatic [Unknown]
